FAERS Safety Report 5741094-0 (Version None)
Quarter: 2008Q2

REPORT INFORMATION
  Report Type: 
  Country: None (occurrence: None)
  Receive Date: 20080516
  Receipt Date: 20080506
  Transmission Date: 20081010
  Serious: Yes (Other)
  Sender: FDA-Public Use
  Company Number: US-PFIZER INC-2008039913

PATIENT
  Sex: Female
  Weight: 49 kg

DRUGS (2)
  1. LYRICA [Suspect]
     Indication: SCIATICA
     Dates: start: 20080201, end: 20080201
  2. LYRICA [Suspect]
     Indication: NEURALGIA

REACTIONS (4)
  - COMA [None]
  - DEHYDRATION [None]
  - HYPERSENSITIVITY [None]
  - SWOLLEN TONGUE [None]
